FAERS Safety Report 4468250-6 (Version None)
Quarter: 2004Q4

REPORT INFORMATION
  Report Type: 
  Country: None (occurrence: None)
  Receive Date: 20041007
  Receipt Date: 20041004
  Transmission Date: 20050328
  Serious: Yes (Hospitalization)
  Sender: FDA-Public Use
  Company Number: CA-MERCK-0410CAN00097

PATIENT
  Age: 51 Year
  Sex: Female

DRUGS (7)
  1. HYDROCHLOROTHIAZIDE [Concomitant]
     Route: 065
  2. IRON (UNSPECIFIED) [Concomitant]
     Route: 065
     Dates: start: 20030101
  3. LANSOPRAZOLE [Concomitant]
     Route: 065
     Dates: start: 20030101
  4. VIOXX [Suspect]
     Indication: OSTEOARTHRITIS
     Route: 048
  5. VIOXX [Suspect]
     Indication: BACK PAIN
     Route: 048
  6. SIMVASTATIN [Concomitant]
     Route: 065
     Dates: start: 20030101
  7. WARFARIN SODIUM [Concomitant]
     Route: 065
     Dates: start: 20030101

REACTIONS (2)
  - CEREBROVASCULAR ACCIDENT [None]
  - HYPERTENSION [None]
